FAERS Safety Report 26137267 (Version 1)
Quarter: 2025Q4

REPORT INFORMATION
  Report Type: Spontaneous
  Country: EU (occurrence: None)
  Receive Date: 20251209
  Receipt Date: 20251209
  Transmission Date: 20260117
  Serious: Yes (Other)
  Sender: B. BRAUN MEDICAL INC.
  Company Number: None

PATIENT
  Age: 61 Year
  Sex: Male

DRUGS (9)
  1. PROPOFOL [Suspect]
     Active Substance: PROPOFOL
     Indication: Anaesthesia procedure
     Dates: start: 20250123, end: 20250123
  2. ROCURONIUM BROMIDE [Suspect]
     Active Substance: ROCURONIUM BROMIDE
     Indication: Anaesthesia procedure
     Dates: start: 20250123, end: 20250123
  3. ACETAMINOPHEN [Suspect]
     Active Substance: ACETAMINOPHEN
     Indication: Pain
     Dates: start: 20250123, end: 20250123
  4. CEFAZOLIN SODIUM [Suspect]
     Active Substance: CEFAZOLIN SODIUM
     Indication: Antibiotic therapy
     Dates: start: 20250123, end: 20250123
  5. REMIFENTANIL HYDROCHLORIDE [Suspect]
     Active Substance: REMIFENTANIL HYDROCHLORIDE
     Indication: Anaesthesia procedure
     Dates: start: 20250123, end: 20250123
  6. KETAMINE [Suspect]
     Active Substance: KETAMINE
     Indication: Anaesthesia procedure
     Dates: start: 20250123, end: 20250123
  7. DEXAMETHASONE [Suspect]
     Active Substance: DEXAMETHASONE
     Indication: Gait disturbance
     Dates: start: 20250123, end: 20250123
  8. KETOPROFEN [Suspect]
     Active Substance: KETOPROFEN
     Indication: Pain
     Dates: start: 20250123, end: 20250123
  9. NEFOPAM HYDROCHLORIDE [Suspect]
     Active Substance: NEFOPAM HYDROCHLORIDE
     Indication: Pain
     Dates: start: 20250123, end: 20250123

REACTIONS (3)
  - Hypotension [Recovered/Resolved]
  - Hypoxia [Recovered/Resolved]
  - Rash [Recovered/Resolved]

NARRATIVE: CASE EVENT DATE: 20250123
